FAERS Safety Report 8920967 (Version 1)
Quarter: 2012Q4

REPORT INFORMATION
  Report Type: Report from Study
  Country: US (occurrence: US)
  Receive Date: 20121122
  Receipt Date: 20121122
  Transmission Date: 20130627
  Serious: Yes (Other)
  Sender: FDA-Public Use
  Company Number: US-BRISTOL-MYERS SQUIBB COMPANY-17129610

PATIENT

DRUGS (1)
  1. YERVOY [Suspect]
     Indication: METASTATIC MALIGNANT MELANOMA

REACTIONS (3)
  - Encephalitis [Unknown]
  - Diarrhoea [Unknown]
  - Fatigue [Unknown]
